FAERS Safety Report 12791213 (Version 1)
Quarter: 2016Q3

REPORT INFORMATION
  Report Type: Spontaneous
  Country: US (occurrence: US)
  Receive Date: 20160929
  Receipt Date: 20160929
  Transmission Date: 20161109
  Serious: No
  Sender: FDA-Public Use
  Company Number: US-SUN PHARMACEUTICAL INDUSTRIES LTD-2015US-104449

PATIENT
  Age: 80 Year
  Sex: Female

DRUGS (1)
  1. LORATADINE. [Suspect]
     Active Substance: LORATADINE
     Indication: SINUS DISORDER
     Dosage: 20MG, EVERY 2 DAYS AT NIGHT
     Route: 065

REACTIONS (5)
  - Product use issue [Unknown]
  - Overdose [Unknown]
  - Urticaria [Unknown]
  - Feeling abnormal [Unknown]
  - Rash macular [Unknown]
